FAERS Safety Report 6024805-9 (Version None)
Quarter: 2008Q4

REPORT INFORMATION
  Report Type: 
  Country: None (occurrence: None)
  Receive Date: 20081231
  Receipt Date: 20081224
  Transmission Date: 20090506
  Serious: Yes (Other)
  Sender: FDA-Public Use
  Company Number: CA-JNJFOC-20081206672

PATIENT
  Sex: Female

DRUGS (2)
  1. REMICADE [Suspect]
     Indication: CROHN'S DISEASE
     Route: 042
  2. CT SCAN DYE [Suspect]
     Indication: SCAN WITH CONTRAST

REACTIONS (2)
  - CONTRAST MEDIA REACTION [None]
  - NEPHROLITHIASIS [None]
